FAERS Safety Report 4921888-1 (Version None)
Quarter: 2006Q1

REPORT INFORMATION
  Report Type: 
  Country: None (occurrence: None)
  Receive Date: 20060224
  Receipt Date: 20051006
  Transmission Date: 20060701
  Serious: No
  Sender: FDA-Public Use
  Company Number: US-BRISTOL-MYERS SQUIBB COMPANY-13189352

PATIENT
  Age: 23 Year
  Sex: Female
  Weight: 170 kg

DRUGS (2)
  1. MONISTAT 1 COMBINATION PACK [Suspect]
     Indication: VULVOVAGINAL MYCOTIC INFECTION
     Route: 067
     Dates: start: 20051003, end: 20051003
  2. CONTRACEPTIVE [Concomitant]
     Route: 062

REACTIONS (2)
  - VAGINAL HAEMORRHAGE [None]
  - VULVAL OEDEMA [None]
